FAERS Safety Report 13164806 (Version 1)
Quarter: 2017Q1

REPORT INFORMATION
  Report Type: Spontaneous
  Country: DE (occurrence: DE)
  Receive Date: 20170130
  Receipt Date: 20170130
  Transmission Date: 20170428
  Serious: Yes (Other)
  Sender: FDA-Public Use
  Company Number: GXKR2017DE000506

PATIENT
  Age: 78 Year
  Sex: Female

DRUGS (1)
  1. BISOPROLOL 1A PHARMA [Suspect]
     Active Substance: BISOPROLOL
     Indication: PRODUCT USED FOR UNKNOWN INDICATION
     Dosage: UNK MG, UNK
     Route: 048
     Dates: start: 2015, end: 201701

REACTIONS (3)
  - Hypoaesthesia [Recovering/Resolving]
  - Polyneuropathy [Recovering/Resolving]
  - Peripheral coldness [Recovering/Resolving]

NARRATIVE: CASE EVENT DATE: 2015
